FAERS Safety Report 7837702-0 (Version None)
Quarter: 2011Q4

REPORT INFORMATION
  Report Type: 
  Country: None (occurrence: None)
  Receive Date: 20111024
  Receipt Date: 20111017
  Transmission Date: 20120403
  Serious: Yes (Other)
  Sender: FDA-Public Use
  Company Number: PHEH2009US13748

PATIENT
  Sex: Female

DRUGS (19)
  1. MULTI-VITAMINS [Concomitant]
  2. FEMARA [Concomitant]
  3. TAMOXIFEN CITRATE [Concomitant]
  4. TRAZODONE HYDROCHLORIDE [Concomitant]
     Dosage: 150 MG, QHS
     Route: 048
  5. AROMASIN [Concomitant]
     Dosage: 25 MG, QD
  6. LEXAPRO [Concomitant]
     Dosage: 20 MG, QD
     Route: 048
  7. ALBUTEROL [Concomitant]
     Dosage: 90 UG, UNK
  8. EFFEXOR [Concomitant]
     Dosage: 75 MG, QD
     Route: 048
  9. VICODIN [Concomitant]
  10. WELLBUTRIN [Concomitant]
     Dosage: 150 MG, UNK
  11. TAXOL [Concomitant]
  12. TOPROL-XL [Concomitant]
     Dosage: 50 MG, QD
  13. ABRAXANE [Concomitant]
  14. AMBIEN [Concomitant]
     Dosage: 10 MG, QHS
     Route: 048
  15. FASLODEX [Concomitant]
  16. ZOMETA [Suspect]
     Indication: BREAST CANCER METASTATIC
     Dosage: UNK, EVERY 3 MONTHS
     Route: 042
     Dates: start: 20040305, end: 20070601
  17. CYMBALTA [Concomitant]
     Dosage: 30 MG, BID
  18. ARIMIDEX [Concomitant]
  19. PRILOSEC [Concomitant]
     Dosage: 20 MG, BID

REACTIONS (36)
  - OSTEOARTHRITIS [None]
  - BACK PAIN [None]
  - VOCAL CORD PARALYSIS [None]
  - CORONARY ARTERY DISEASE [None]
  - HEPATIC STEATOSIS [None]
  - DIZZINESS [None]
  - NEUROPATHY PERIPHERAL [None]
  - INJURY [None]
  - PAIN [None]
  - ANXIETY [None]
  - LYMPHADENOPATHY MEDIASTINAL [None]
  - GASTROOESOPHAGEAL REFLUX DISEASE [None]
  - GASTRITIS [None]
  - ABDOMINAL PAIN [None]
  - CHOLECYSTITIS [None]
  - HOT FLUSH [None]
  - ANHEDONIA [None]
  - OSTEOPENIA [None]
  - SPINAL OSTEOARTHRITIS [None]
  - DYSPNOEA [None]
  - ALOPECIA [None]
  - GENERAL PHYSICAL HEALTH DETERIORATION [None]
  - LYMPHOEDEMA [None]
  - LUNG NEOPLASM [None]
  - JAW FRACTURE [None]
  - DYSPHORIA [None]
  - OSTEONECROSIS OF JAW [None]
  - CHRONIC SINUSITIS [None]
  - HIATUS HERNIA [None]
  - PALATAL DISORDER [None]
  - CYST [None]
  - DEPRESSION [None]
  - ORAL CAVITY FISTULA [None]
  - OSTEOMYELITIS [None]
  - CHEST PAIN [None]
  - LARYNGITIS [None]
